FAERS Safety Report 4365961-8 (Version None)
Quarter: 2004Q2

REPORT INFORMATION
  Report Type: 
  Country: None (occurrence: None)
  Receive Date: 20040520
  Receipt Date: 20040504
  Transmission Date: 20050107
  Serious: Yes (Hospitalization, Other)
  Sender: FDA-Public Use
  Company Number: PHNU2004DE01560

PATIENT
  Age: 75 Year
  Sex: Female

DRUGS (1)
  1. VISUDYNE [Suspect]
     Indication: CHOROIDAL NEOVASCULARISATION
     Dosage: 5.1 ML ONCE  IV
     Route: 042
     Dates: start: 20040206, end: 20040206

REACTIONS (2)
  - INFLAMMATION [None]
  - RETINAL DETACHMENT [None]
